FAERS Safety Report 23981248 (Version 1)
Quarter: 2024Q2

REPORT INFORMATION
  Report Type: Spontaneous
  Country: US (occurrence: None)
  Receive Date: 20240614
  Receipt Date: 20240614
  Transmission Date: 20240716
  Serious: Yes (Other)
  Sender: FDA-Public Use
  Company Number: None

PATIENT
  Age: 71 Year
  Sex: Female
  Weight: 75.6 kg

DRUGS (9)
  1. REPATHA [Suspect]
     Active Substance: EVOLOCUMAB
     Indication: Blood cholesterol increased
     Dosage: OTHER QUANTITY : 1 INJECTION(S)?OTHER FREQUENCY : EVERY 2 WEEKS?OTHER ROUTE : STOMACH  OR LEG?
     Route: 050
     Dates: start: 20230721, end: 20230818
  2. SYNTHROID [Suspect]
     Active Substance: LEVOTHYROXINE SODIUM
  3. FLUCONAZOLE [Concomitant]
  4. CALCIUM [Concomitant]
  5. VITAMIN D3 [Concomitant]
     Active Substance: CHOLECALCIFEROL
  6. SALINE NASAL MIST [Concomitant]
  7. Refresh optive Systane [Concomitant]
  8. NYSTATIN [Concomitant]
  9. CLOTRIMAZOLE [Concomitant]

REACTIONS (2)
  - Thyroid function test abnormal [None]
  - Influenza like illness [None]

NARRATIVE: CASE EVENT DATE: 20230818
